FAERS Safety Report 11131496 (Version 3)
Quarter: 2015Q2

REPORT INFORMATION
  Report Type: Spontaneous
  Country: US (occurrence: US)
  Receive Date: 20150522
  Receipt Date: 20150618
  Transmission Date: 20150821
  Serious: Yes (Other)
  Sender: FDA-Public Use
  Company Number: US-AMGEN-USASL2014079695

PATIENT
  Age: 79 Year
  Sex: Female

DRUGS (5)
  1. PROLIA [Suspect]
     Active Substance: DENOSUMAB
     Indication: OSTEOPOROSIS POSTMENOPAUSAL
     Dosage: UNK
     Route: 065
     Dates: start: 201405
  2. VESICARE [Concomitant]
     Active Substance: SOLIFENACIN SUCCINATE
  3. VITAMINS                           /00067501/ [Concomitant]
     Active Substance: VITAMINS
  4. RESTASIS [Concomitant]
     Active Substance: CYCLOSPORINE
  5. MELOXICAM. [Concomitant]
     Active Substance: MELOXICAM

REACTIONS (15)
  - Lens dislocation [Recovered/Resolved]
  - Feeling abnormal [Unknown]
  - Fatigue [Unknown]
  - Arthralgia [Unknown]
  - Joint stiffness [Unknown]
  - Spinal pain [Unknown]
  - Dizziness [Unknown]
  - Musculoskeletal stiffness [Unknown]
  - Visual impairment [Unknown]
  - Constipation [Unknown]
  - Injection site pain [Unknown]
  - Back pain [Unknown]
  - Malaise [Unknown]
  - Gastrointestinal disorder [Unknown]
  - Arthritis [Unknown]

NARRATIVE: CASE EVENT DATE: 201505
